FAERS Safety Report 19937772 (Version 2)
Quarter: 2021Q4

REPORT INFORMATION
  Report Type: Spontaneous
  Country: ES (occurrence: ES)
  Receive Date: 20211011
  Receipt Date: 20211021
  Transmission Date: 20220303
  Serious: Yes (Death, Hospitalization, Other)
  Sender: FDA-Public Use
  Company Number: ES-002147023-NVSC2021ES217845

PATIENT
  Age: 51 Year
  Sex: Female

DRUGS (18)
  1. LETROZOLE [Suspect]
     Active Substance: LETROZOLE
     Indication: Breast cancer metastatic
     Dosage: UNK
     Route: 065
  2. LETROZOLE [Suspect]
     Active Substance: LETROZOLE
     Dosage: 2.5 MILLIGRAM, ONCE A DAY
     Route: 065
     Dates: start: 20210730
  3. KISQALI [Suspect]
     Active Substance: RIBOCICLIB
     Indication: Breast cancer metastatic
     Dosage: 600 MILLIGRAM
     Route: 048
  4. KISQALI [Suspect]
     Active Substance: RIBOCICLIB
     Indication: Hormone receptor positive HER2 negative breast cancer
     Dosage: 600 MILLIGRAM, ONCE A DAY
     Route: 048
     Dates: start: 20210730
  5. ASPIRIN [Concomitant]
     Active Substance: ASPIRIN
     Indication: Product used for unknown indication
     Dosage: 300 MILLIGRAM, ONCE A DAY(300 MG, Q24H)
     Route: 065
  6. PITAVASTATIN [Concomitant]
     Active Substance: PITAVASTATIN
     Indication: Product used for unknown indication
     Dosage: 2 MILLIGRAM, ONCE A DAY(2 MG, Q24H)
     Route: 065
  7. CALCIUM\VITAMIN D [Concomitant]
     Active Substance: CALCIUM\VITAMIN D
     Indication: Product used for unknown indication
     Dosage: UNK
     Route: 065
     Dates: start: 20210730
  8. DENOSUMAB [Concomitant]
     Active Substance: DENOSUMAB
     Indication: Product used for unknown indication
     Dosage: UNK
     Route: 065
     Dates: start: 20210730
  9. DESVENLAFAXINE [Concomitant]
     Active Substance: DESVENLAFAXINE
     Indication: Product used for unknown indication
     Dosage: 50 MILLIGRAM, ONCE A DAY(50 MG, Q24H)
     Route: 065
  10. DEXAMETHASONE [Concomitant]
     Active Substance: DEXAMETHASONE
     Indication: Product used for unknown indication
     Dosage: 4 MILLIGRAM, 3 TIMES A DAY(4 MG, Q8H)
     Route: 065
  11. DIAZEPAM [Concomitant]
     Active Substance: DIAZEPAM
     Indication: Product used for unknown indication
     Dosage: 5 MILLIGRAM, ONCE A DAY(5 MG, Q24)
     Route: 065
  12. FENTANYL [Concomitant]
     Active Substance: FENTANYL
     Indication: Product used for unknown indication
     Dosage: 100 MICROGRAM (4 HOUR)
     Route: 065
  13. FULVESTRANT [Concomitant]
     Active Substance: FULVESTRANT
     Indication: Hormone therapy
     Dosage: UNK
     Route: 065
  14. Mastical d [Concomitant]
     Indication: Product used for unknown indication
     Dosage: UNK UNK, ONCE A DAY(UNK, Q24H)
     Route: 065
  15. Nolotil [Concomitant]
     Indication: Product used for unknown indication
     Dosage: 575 MILLIGRAM, 3 TIMES A DAY(575 MG, Q8H)
     Route: 065
  16. OMEPRAZOLE [Concomitant]
     Active Substance: OMEPRAZOLE
     Indication: Product used for unknown indication
     Dosage: 20 MILLIGRAM, ONCE A DAY(20 MG, Q24H)
     Route: 065
  17. CANDESARTAN CILEXETIL [Concomitant]
     Active Substance: CANDESARTAN CILEXETIL
     Indication: Product used for unknown indication
     Dosage: 16 MILLIGRAM, ONCE A DAY(16 MG, Q24H)
     Route: 065
  18. TAPENTADOL [Concomitant]
     Active Substance: TAPENTADOL
     Indication: Product used for unknown indication
     Dosage: 150 MILLIGRAM, TWO TIMES A DAY(150 MG, Q12H)
     Route: 065

REACTIONS (5)
  - Pneumonia [Fatal]
  - Neutropenia [Fatal]
  - Acute respiratory failure [Unknown]
  - Lung infiltration [Unknown]
  - Dyspnoea at rest [Unknown]

NARRATIVE: CASE EVENT DATE: 20210812
